FAERS Safety Report 6958291-9 (Version None)
Quarter: 2010Q3

REPORT INFORMATION
  Report Type: 
  Country: None (occurrence: None)
  Receive Date: 20100831
  Receipt Date: 20100824
  Transmission Date: 20110219
  Serious: Yes (Other)
  Sender: FDA-Public Use
  Company Number: A0876400A

PATIENT
  Age: 63 Year
  Sex: Female

DRUGS (9)
  1. PROMACTA [Suspect]
     Dosage: 75MG PER DAY
     Route: 048
     Dates: start: 20091229, end: 20100222
  2. PREDNISONE [Concomitant]
     Dosage: 10MG PER DAY
  3. IMMUNE GLOBULIN INTRAVENOUS (HUMAN) [Concomitant]
     Dates: end: 20091229
  4. TYLENOL-500 [Concomitant]
  5. TUMS [Concomitant]
  6. POTASSIUM [Concomitant]
  7. LIPITOR [Concomitant]
  8. VITAMIN D [Concomitant]
  9. FELODIPINE [Concomitant]

REACTIONS (7)
  - ATRIAL FIBRILLATION [None]
  - DRUG INEFFECTIVE [None]
  - ECCHYMOSIS [None]
  - EPISTAXIS [None]
  - HAEMATURIA [None]
  - HEPATITIS B [None]
  - URINARY TRACT INFECTION [None]
